FAERS Safety Report 18729788 (Version 1)
Quarter: 2021Q1

REPORT INFORMATION
  Report Type: Report from Study
  Country: BE (occurrence: BE)
  Receive Date: 20210112
  Receipt Date: 20210112
  Transmission Date: 20210419
  Serious: Yes (Other)
  Sender: FDA-Public Use
  Company Number: BE-ASPP-GLO2020BE012586

PATIENT

DRUGS (55)
  1. DEXAMETHASONE. [Suspect]
     Active Substance: DEXAMETHASONE
     Dosage: 20 MG
     Route: 048
     Dates: start: 20180710
  2. DEXAMETHASONE. [Suspect]
     Active Substance: DEXAMETHASONE
     Dosage: 20 MG
     Route: 048
     Dates: start: 20180620
  3. POMALIDOMIDE [Suspect]
     Active Substance: POMALIDOMIDE
     Dosage: 4 MILLIGRAM
     Route: 048
     Dates: start: 20180321, end: 20180410
  4. BISOPROLOL [Concomitant]
     Active Substance: BISOPROLOL
     Dosage: 7.5 MG
     Route: 065
     Dates: start: 20180612, end: 20180730
  5. METHYLPREDNISOLONE. [Concomitant]
     Active Substance: METHYLPREDNISOLONE
     Dosage: 32 MG
     Route: 065
     Dates: start: 20180601, end: 20180604
  6. NADROPARINE [Concomitant]
     Active Substance: NADROPARIN
     Indication: THROMBOSIS PROPHYLAXIS
     Dosage: 0.4 ML
     Route: 065
     Dates: start: 20180321, end: 20180525
  7. AMOXICILLIN/CLAVULANIC ACID [Concomitant]
     Active Substance: AMOXICILLIN\CLAVULANIC ACID
     Indication: FRACTURE
     Dosage: 1750 MG
     Route: 065
     Dates: start: 20180427, end: 20180506
  8. DEXAMETHASONE. [Suspect]
     Active Substance: DEXAMETHASONE
     Dosage: 20 MG
     Route: 048
     Dates: start: 20180523
  9. AREDIA [Concomitant]
     Active Substance: PAMIDRONATE DISODIUM
     Dosage: UNK
     Route: 065
     Dates: start: 20180321, end: 20180428
  10. METHYLPREDNISOLONE. [Concomitant]
     Active Substance: METHYLPREDNISOLONE
     Dosage: 16 MG
     Route: 065
     Dates: start: 20180609, end: 20180617
  11. TILDIEM [Concomitant]
     Active Substance: DILTIAZEM HYDROCHLORIDE
     Indication: ATRIAL FIBRILLATION
     Dosage: 60 MG
     Route: 065
     Dates: start: 20180609, end: 20180609
  12. DEXAMETHASONE. [Suspect]
     Active Substance: DEXAMETHASONE
     Dosage: 20 MG
     Route: 048
     Dates: start: 20180530
  13. DEXAMETHASONE. [Suspect]
     Active Substance: DEXAMETHASONE
     Dosage: 20 MG
     Route: 048
     Dates: start: 20180516
  14. PROGOR [Concomitant]
     Active Substance: DILTIAZEM HYDROCHLORIDE
     Indication: ATRIAL FIBRILLATION
     Dosage: 180 MG
     Route: 065
     Dates: start: 20180606, end: 20180607
  15. LYRICA [Concomitant]
     Active Substance: PREGABALIN
     Indication: NEURALGIA
     Dosage: 75 MG
     Route: 065
     Dates: start: 20170206
  16. CYCLOPHOSPHAMIDE. [Concomitant]
     Active Substance: CYCLOPHOSPHAMIDE
     Indication: PLASMA CELL MYELOMA
     Dosage: 60 MG
     Route: 065
     Dates: start: 20180321
  17. DEXAMETHASONE. [Suspect]
     Active Substance: DEXAMETHASONE
     Dosage: 20 MG
     Route: 048
     Dates: start: 20180321
  18. DEXAMETHASONE. [Suspect]
     Active Substance: DEXAMETHASONE
     Dosage: 20 MG
     Route: 048
     Dates: start: 20180704
  19. POMALIDOMIDE [Suspect]
     Active Substance: POMALIDOMIDE
     Dosage: 4 MILLIGRAM
     Route: 048
     Dates: start: 20190522, end: 20190611
  20. CEFTRIAXONE. [Concomitant]
     Active Substance: CEFTRIAXONE
     Indication: SEPSIS
     Route: 065
  21. BISOPROLOL [Concomitant]
     Active Substance: BISOPROLOL
     Indication: ATRIAL FIBRILLATION
     Dosage: 2.5 MG
     Route: 065
     Dates: start: 20180609, end: 20180611
  22. BISOPROLOL [Concomitant]
     Active Substance: BISOPROLOL
     Dosage: 5 MG
     Route: 065
     Dates: start: 20180526, end: 20180605
  23. METHYLPREDNISOLONE. [Concomitant]
     Active Substance: METHYLPREDNISOLONE
     Indication: HYPERTHYROIDISM
     Dosage: 8 MG
     Route: 065
     Dates: start: 20180618, end: 20180621
  24. MAGNESIUM [Concomitant]
     Active Substance: MAGNESIUM
     Indication: HYPOMAGNESAEMIA
     Route: 065
     Dates: start: 20160809
  25. POMALIDOMIDE [Suspect]
     Active Substance: POMALIDOMIDE
     Indication: PLASMA CELL MYELOMA
     Dosage: 4 MILLIGRAM
     Route: 048
     Dates: start: 20180620, end: 20180710
  26. POMALIDOMIDE [Suspect]
     Active Substance: POMALIDOMIDE
     Dosage: 4 MILLIGRAM
     Route: 048
     Dates: start: 20180516, end: 20180605
  27. CLOPIDOGREL [Concomitant]
     Active Substance: CLOPIDOGREL BISULFATE
     Indication: ACUTE CORONARY SYNDROME
     Dosage: 75 MG
     Route: 065
     Dates: start: 20180606, end: 20180731
  28. CEDOCARD [Concomitant]
     Active Substance: ISOSORBIDE DINITRATE
     Indication: ACUTE CORONARY SYNDROME
     Dosage: 15 MG
     Route: 065
     Dates: start: 20180612, end: 20180730
  29. CLONAZEPAM. [Concomitant]
     Active Substance: CLONAZEPAM
     Indication: NEURALGIA
     Dosage: 2
     Route: 065
     Dates: start: 20170206
  30. DEXAMETHASONE. [Suspect]
     Active Substance: DEXAMETHASONE
     Dosage: 20 MG
     Route: 048
     Dates: start: 20190529
  31. DEXAMETHASONE. [Suspect]
     Active Substance: DEXAMETHASONE
     Dosage: 20 MG
     Route: 048
     Dates: start: 20180606
  32. DEXAMETHASONE. [Suspect]
     Active Substance: DEXAMETHASONE
     Dosage: 20 MG
     Route: 048
     Dates: start: 20180411
  33. DEXAMETHASONE. [Suspect]
     Active Substance: DEXAMETHASONE
     Dosage: 20 MG
     Route: 048
     Dates: start: 20180404
  34. DEXAMETHASONE. [Suspect]
     Active Substance: DEXAMETHASONE
     Dosage: 20 MG
     Route: 048
     Dates: start: 20190522
  35. CORUNO [Concomitant]
     Active Substance: MOLSIDOMINE
     Indication: ACUTE CORONARY SYNDROME
     Dosage: 16 MG
     Route: 065
     Dates: start: 20180611, end: 20180612
  36. THIAMAZOL [Concomitant]
     Active Substance: METHIMAZOLE
     Indication: HYPERTHYROIDISM
     Dosage: 20 MG
     Route: 065
     Dates: start: 20180530, end: 20180620
  37. METHYLPREDNISOLONE. [Concomitant]
     Active Substance: METHYLPREDNISOLONE
     Dosage: 4 MG
     Route: 065
     Dates: start: 20180622, end: 20180626
  38. METHYLPREDNISOLONE. [Concomitant]
     Active Substance: METHYLPREDNISOLONE
     Dosage: 24 MG
     Route: 065
     Dates: start: 20180606, end: 20180608
  39. TINZAPARIN [Concomitant]
     Active Substance: TINZAPARIN
     Indication: ATRIAL FIBRILLATION
     Dosage: 14000 IU
     Route: 065
     Dates: start: 20180601
  40. DIGOXINE [Concomitant]
     Active Substance: DIGOXIN
     Indication: ATRIAL FIBRILLATION
     Dosage: 0.13 MG
     Route: 065
     Dates: start: 20180529, end: 20180605
  41. NADROPARINE [Concomitant]
     Active Substance: NADROPARIN
     Indication: ATRIAL FIBRILLATION
     Dosage: 0.8 ML
     Route: 065
     Dates: start: 20180526, end: 20180531
  42. DUOVENT [Concomitant]
     Active Substance: FENOTEROL HYDROBROMIDE
     Indication: DYSPNOEA EXERTIONAL
     Dosage: 2
     Route: 065
     Dates: start: 20180404, end: 20180411
  43. IMMUNOGLOBULIN [Concomitant]
     Indication: HYPOGAMMAGLOBULINAEMIA
     Route: 065
     Dates: start: 20171120
  44. DEXAMETHASONE. [Suspect]
     Active Substance: DEXAMETHASONE
     Dosage: 20 MG
     Route: 048
     Dates: start: 20180627
  45. AREDIA [Concomitant]
     Active Substance: PAMIDRONATE DISODIUM
     Indication: BONE GRAFT LYSIS
     Dosage: 60 MG
     Route: 065
     Dates: start: 20180912
  46. CALCIUM CARBONATE. [Concomitant]
     Active Substance: CALCIUM CARBONATE
     Indication: HYPOCALCAEMIA
     Dosage: 1.25 G
     Route: 065
     Dates: start: 20160809
  47. CEDOCARD [Concomitant]
     Active Substance: ISOSORBIDE DINITRATE
     Dosage: 5 MG
     Route: 065
     Dates: start: 20180731
  48. ELOCOM [Concomitant]
     Active Substance: MOMETASONE FUROATE
     Indication: RASH MACULO-PAPULAR
     Dosage: 2
     Route: 065
     Dates: start: 20180327, end: 20180404
  49. DEXAMETHASONE. [Suspect]
     Active Substance: DEXAMETHASONE
     Indication: PLASMA CELL MYELOMA
     Dosage: 20 MG
     Route: 048
     Dates: start: 20180328
  50. DEXAMETHASONE. [Suspect]
     Active Substance: DEXAMETHASONE
     Dosage: 20 MG
     Route: 048
     Dates: start: 20190612
  51. DEXAMETHASONE. [Suspect]
     Active Substance: DEXAMETHASONE
     Dosage: 20 MG
     Route: 048
     Dates: start: 20190605
  52. CEFTRIAXONE. [Concomitant]
     Active Substance: CEFTRIAXONE
     Indication: PNEUMONIA
     Dosage: 4 G
     Route: 065
     Dates: start: 20180523, end: 20180528
  53. PARACETAMOL [Concomitant]
     Active Substance: ACETAMINOPHEN
     Indication: BACK PAIN
     Dosage: 1 G
     Route: 065
     Dates: start: 20190227
  54. NITROGLYCERINE [Concomitant]
     Active Substance: NITROGLYCERIN
     Indication: ACUTE CORONARY SYNDROME
     Dosage: 15 MG
     Route: 065
     Dates: start: 20180606, end: 20180606
  55. BISOPROLOL [Concomitant]
     Active Substance: BISOPROLOL
     Dosage: 5 MG
     Route: 065
     Dates: start: 20180731

REACTIONS (2)
  - Leukopenia [Recovered/Resolved]
  - Neutropenia [Recovered/Resolved]

NARRATIVE: CASE EVENT DATE: 20180411
